FAERS Safety Report 10182607 (Version 1)
Quarter: 2014Q2

REPORT INFORMATION
  Report Type: Spontaneous
  Country: GB (occurrence: None)
  Receive Date: 20140516
  Receipt Date: 20140516
  Transmission Date: 20141212
  Serious: Yes (Other)
  Sender: FDA-Public Use
  Company Number: AUR-APL-2014-05533

PATIENT
  Sex: 0

DRUGS (1)
  1. TERBINAFINE (TERBINAFINE) [Suspect]
     Indication: NAIL INFECTION
     Dates: start: 20140415, end: 20140415

REACTIONS (4)
  - Swelling face [None]
  - Skin exfoliation [None]
  - Blister [None]
  - Skin disorder [None]
